FAERS Safety Report 10467862 (Version 2)
Quarter: 2014Q3

REPORT INFORMATION
  Report Type: Spontaneous
  Country: JP (occurrence: JP)
  Receive Date: 20140922
  Receipt Date: 20140922
  Transmission Date: 20150326
  Serious: Yes (Hospitalization)
  Sender: FDA-Public Use
  Company Number: PHHY2014JP100127

PATIENT
  Age: 44 Year
  Sex: Female
  Weight: 65 kg

DRUGS (7)
  1. IMUSERA [Suspect]
     Active Substance: FINGOLIMOD HYDROCHLORIDE
     Dosage: 0.5 MG, 5 DAYS A WEEK
     Route: 048
     Dates: start: 20140705, end: 20140805
  2. IMUSERA [Suspect]
     Active Substance: FINGOLIMOD HYDROCHLORIDE
     Indication: MULTIPLE SCLEROSIS
     Dosage: 0.5 MG, QOD
     Route: 048
     Dates: start: 20130806, end: 20140704
  3. VESICARE [Concomitant]
     Active Substance: SOLIFENACIN SUCCINATE
     Indication: HYPERTONIC BLADDER
     Dosage: 10 MG, UNK
     Route: 048
     Dates: start: 20100606
  4. METHYCOOL [Concomitant]
     Active Substance: METHYLCOBALAMIN
     Indication: CARPAL TUNNEL SYNDROME
     Dosage: 1500 UG, UNK
     Route: 048
     Dates: start: 20101001
  5. IMUSERA [Suspect]
     Active Substance: FINGOLIMOD HYDROCHLORIDE
     Dosage: 0.5 MG, QOD
     Route: 048
     Dates: start: 20140814
  6. JUVELA [Concomitant]
     Active Substance: .ALPHA.-TOCOPHEROL\RETINOL
     Indication: PERIPHERAL CIRCULATORY FAILURE
     Route: 048
  7. BIO-THREE [Concomitant]
     Active Substance: HERBALS
     Indication: DIARRHOEA
     Dosage: 1 DF, UNK
     Route: 048
     Dates: start: 20140308

REACTIONS (3)
  - Leukopenia [Recovered/Resolved]
  - Neutropenia [Recovered/Resolved]
  - Herpes zoster [Recovering/Resolving]

NARRATIVE: CASE EVENT DATE: 20140803
